FAERS Safety Report 4654771-X (Version None)
Quarter: 2005Q2

REPORT INFORMATION
  Report Type: 
  Country: None (occurrence: None)
  Receive Date: 20050506
  Receipt Date: 20041130
  Transmission Date: 20051028
  Serious: Yes (Other)
  Sender: FDA-Public Use
  Company Number: JP-ROCHE-387997

PATIENT
  Age: 71 Year
  Sex: Female

DRUGS (8)
  1. PEG-INTERFERON ALFA 2A (RO 25-8310) [Suspect]
     Route: 058
     Dates: start: 20040304, end: 20041020
  2. PEG-INTERFERON ALFA 2A (RO 25-8310) [Suspect]
     Route: 058
     Dates: start: 20041202, end: 20050301
  3. PROHEPARUM [Concomitant]
     Route: 048
     Dates: start: 20030506
  4. URSO 250 [Concomitant]
     Route: 048
     Dates: start: 20030506
  5. ZANTAC [Concomitant]
     Route: 048
     Dates: start: 20030506
  6. ULCERLMIN [Concomitant]
     Route: 048
     Dates: start: 20030506
  7. HALCION [Concomitant]
     Route: 048
     Dates: start: 20030506
  8. LOXONIN [Concomitant]
     Route: 048
     Dates: start: 20040304

REACTIONS (7)
  - CONJUNCTIVITIS ALLERGIC [None]
  - DYSPNOEA [None]
  - FACE OEDEMA [None]
  - PALPITATIONS [None]
  - PLEURAL EFFUSION [None]
  - RHINITIS ALLERGIC [None]
  - STOMATITIS [None]
